FAERS Safety Report 5062611-2 (Version None)
Quarter: 2006Q3

REPORT INFORMATION
  Report Type: 
  Country: None (occurrence: None)
  Receive Date: 20060721
  Receipt Date: 20060705
  Transmission Date: 20061208
  Serious: Yes (Hospitalization)
  Sender: FDA-Public Use
  Company Number: USA040463718

PATIENT
  Age: 75 Year
  Sex: Female
  Weight: 59.1 kg

DRUGS (10)
  1. FORTEO [Suspect]
     Indication: OSTEOPOROSIS
     Dosage: 20 UG, DAILY (1/D)
     Dates: start: 20040212, end: 20041003
  2. EVISTA [Suspect]
     Indication: OSTEOPOROSIS
     Dosage: 60 MG, DAILY (1/D)
     Dates: start: 19990101
  3. FORTEO PEN (FORTEO PEN) PEN, DISPOSABLE [Concomitant]
  4. LIPITOR [Concomitant]
  5. FOSAMAX [Concomitant]
  6. CALCITRIOL [Concomitant]
  7. LEVOXYL [Concomitant]
  8. CALCIUM (CALCIUM) [Concomitant]
  9. LEVOTHYROXINE SODIUM [Concomitant]
  10. ALENDRONATE SODIUM [Concomitant]

REACTIONS (8)
  - BLOOD CALCIUM INCREASED [None]
  - BONE DENSITY DECREASED [None]
  - DIZZINESS [None]
  - DRUG INEFFECTIVE [None]
  - NAUSEA [None]
  - PHARMACEUTICAL PRODUCT COMPLAINT [None]
  - RESORPTION BONE INCREASED [None]
  - THYROID ADENOMA [None]
